FAERS Safety Report 6428815-9 (Version None)
Quarter: 2009Q4

REPORT INFORMATION
  Report Type: 
  Country: None (occurrence: None)
  Receive Date: 20091105
  Receipt Date: 20091029
  Transmission Date: 20100525
  Serious: Yes (Other)
  Sender: FDA-Public Use
  Company Number: CHPA2009US21199

PATIENT
  Age: 67 Year
  Sex: Female
  Weight: 65.306 kg

DRUGS (7)
  1. EXCEDRIN TENSION HEADACHE(NCH) [Suspect]
     Indication: HEADACHE
     Dosage: 1 TO 4 DF, QD
     Route: 048
  2. SYNTHROID [Concomitant]
     Indication: HYPOTHYROIDISM
     Dosage: UNK, UNK
     Route: 048
  3. ZOCOR [Concomitant]
     Indication: BLOOD DISORDER
     Dosage: UNK, UNK
     Route: 048
  4. NEXIUM [Concomitant]
     Indication: GASTROOESOPHAGEAL REFLUX DISEASE
     Dosage: UNK, UNK
     Route: 048
  5. ZANTAC [Concomitant]
     Indication: GASTROOESOPHAGEAL REFLUX DISEASE
     Dosage: UNK, UNK
     Route: 048
  6. LANTUS [Concomitant]
     Indication: DIABETES MELLITUS
     Dosage: 16 U, QD
     Route: 058
  7. HUMULIN R [Concomitant]
     Indication: DIABETES MELLITUS
     Dosage: SLIDING SCALE
     Route: 058

REACTIONS (8)
  - ANXIETY [None]
  - BLOOD GLUCOSE DECREASED [None]
  - BLOOD GLUCOSE FLUCTUATION [None]
  - DRUG DEPENDENCE [None]
  - INSOMNIA [None]
  - INTENTIONAL DRUG MISUSE [None]
  - NIGHTMARE [None]
  - SHOCK HYPOGLYCAEMIC [None]
